FAERS Safety Report 7374698-2 (Version None)
Quarter: 2011Q1

REPORT INFORMATION
  Report Type: 
  Country: None (occurrence: None)
  Receive Date: 20110325
  Receipt Date: 20100809
  Transmission Date: 20110831
  Serious: No
  Sender: FDA-Public Use
  Company Number: US-MYLANLABS-2010S1014529

PATIENT
  Age: 83 Year
  Sex: Female

DRUGS (9)
  1. FENTANYL-100 [Suspect]
     Indication: METASTASES TO BREAST
     Dosage: CHANGED Q72H
     Route: 062
     Dates: start: 20100701
  2. EFFEXOR [Concomitant]
     Indication: ANXIETY
  3. AMLODIPINE [Concomitant]
     Indication: HYPERTENSION
  4. LISINOPRIL [Concomitant]
     Indication: HYPERTENSION
  5. TAMOXIFEN CITRATE [Concomitant]
     Indication: BREAST CANCER
  6. CALCITRIOL [Concomitant]
  7. FENTANYL-100 [Suspect]
     Indication: ARTHRITIS
     Dosage: CHANGED Q72H
     Route: 062
     Dates: start: 20100701
  8. VICODIN [Concomitant]
     Indication: BREAKTHROUGH PAIN
  9. METOPROLOL [Concomitant]

REACTIONS (2)
  - ANXIETY [None]
  - FEELING ABNORMAL [None]
